FAERS Safety Report 14600695 (Version 4)
Quarter: 2018Q2

REPORT INFORMATION
  Report Type: Spontaneous
  Country: BE (occurrence: BE)
  Receive Date: 20180305
  Receipt Date: 20180410
  Transmission Date: 20180711
  Serious: Yes (Life-Threatening, Other)
  Sender: FDA-Public Use
  Company Number: BE-PFIZER INC-2018086965

PATIENT
  Sex: Male
  Weight: 3 kg

DRUGS (12)
  1. ASPIRIN. [Suspect]
     Active Substance: ASPIRIN
     Dosage: 100 MG, UNK
     Route: 064
  2. L-THYROXINE [Suspect]
     Active Substance: LEVOTHYROXINE
     Dosage: 50 MG, QD
     Route: 064
  3. AUGMENTIN [Suspect]
     Active Substance: AMOXICILLIN\CLAVULANATE POTASSIUM
     Dosage: 875 MG, TID
     Route: 064
  4. VENTOLIN [Suspect]
     Active Substance: ALBUTEROL SULFATE
     Indication: ASTHMA
     Dosage: UNK UNK, AS NEEDED
     Route: 064
     Dates: start: 20150320, end: 20160601
  5. AERIUS [Suspect]
     Active Substance: DESLORATADINE
     Indication: CHRONIC SPONTANEOUS URTICARIA
     Dosage: 5 MG, 3X/DAY
     Route: 064
     Dates: start: 20150603, end: 20160601
  6. XOLAIR [Suspect]
     Active Substance: OMALIZUMAB
     Indication: CHRONIC SPONTANEOUS URTICARIA
     Dosage: 300 MG, MONTHLY
     Route: 064
     Dates: start: 20111119, end: 20160519
  7. TRECLINAX [Suspect]
     Active Substance: CLINDAMYCIN PHOSPHATE\TRETINOIN
     Indication: ACNE
     Dosage: 1 DF, 1X/DAY
     Route: 064
     Dates: start: 20160128, end: 20160601
  8. PANTOMED (PANTOPRAZOLE) [Suspect]
     Active Substance: PANTOPRAZOLE
     Dosage: 1 DF, 1X/DAY
     Route: 064
     Dates: start: 20160125, end: 20160601
  9. SERETIDE [Suspect]
     Active Substance: FLUTICASONE PROPIONATE\SALMETEROL XINAFOATE
     Indication: ASTHMA
     Dosage: 25/250 MG, 2X/DAY
     Route: 064
     Dates: start: 20150320, end: 20160601
  10. FEROGRAD [Suspect]
     Active Substance: ASCORBIC ACID\FERROUS SULFATE
     Indication: ALOPECIA
     Dosage: 1 DF, 1X/DAY
     Route: 064
     Dates: start: 20160125, end: 20160601
  11. CELESTONE [Suspect]
     Active Substance: BETAMETHASONE
     Dosage: UNK
     Route: 064
  12. NASONEX [Suspect]
     Active Substance: MOMETASONE FUROATE
     Dosage: UNK UNK, BID
     Route: 064

REACTIONS (3)
  - Premature baby [Unknown]
  - Respiratory distress [Unknown]
  - Foetal exposure during pregnancy [Unknown]

NARRATIVE: CASE EVENT DATE: 2016
